FAERS Safety Report 20931994 (Version 1)
Quarter: 2022Q2

REPORT INFORMATION
  Report Type: Spontaneous
  Country: NL (occurrence: NL)
  Receive Date: 20220608
  Receipt Date: 20220608
  Transmission Date: 20220721
  Serious: Yes (Other)
  Sender: FDA-Public Use
  Company Number: None

PATIENT
  Sex: Male
  Weight: 72 kg

DRUGS (2)
  1. TADALAFIL [Suspect]
     Active Substance: TADALAFIL
     Indication: Erectile dysfunction
     Dosage: IF NECESSARY, TADALAFIL TABLET FO 10MG / BRAND NAME NOT SPECIFIED , UNIT DOSE : 1 DF, DURATION : 13
     Dates: start: 2009, end: 20220515
  2. BISACODYL [Concomitant]
     Active Substance: BISACODYL
     Dosage: 10 MG (MILLIGRAM) , BRAND NAME NOT SPECIFIED , THERAPY START DATE AND END DATE : ASKU , STRENGTH : 1

REACTIONS (1)
  - Glaucoma [Unknown]
